FAERS Safety Report 9350687 (Version 2)
Quarter: 2013Q2

REPORT INFORMATION
  Report Type: Spontaneous
  Country: GB (occurrence: GB)
  Receive Date: 20130617
  Receipt Date: 20130627
  Transmission Date: 20140414
  Serious: Yes (Other)
  Sender: FDA-Public Use
  Company Number: PHHY2013GB058559

PATIENT
  Age: 26 Year
  Sex: Female

DRUGS (30)
  1. TRAMADOL [Suspect]
     Indication: PAIN
  2. TRAMADOL [Suspect]
     Indication: MYALGIA
  3. TRAMADOL [Suspect]
     Indication: OSTEOPOROSIS
  4. TRAMADOL [Suspect]
     Indication: OSTEOARTHRITIS
  5. TRAMADOL [Suspect]
     Indication: RHEUMATOID ARTHRITIS
  6. TRAMADOL [Suspect]
     Indication: HYPERMOBILITY SYNDROME
  7. CO-CODAMOL [Suspect]
     Indication: PAIN
     Route: 065
  8. CO-CODAMOL [Suspect]
     Indication: MYALGIA
     Route: 065
  9. CO-CODAMOL [Suspect]
     Indication: OSTEOPOROSIS
     Route: 065
  10. CO-CODAMOL [Suspect]
     Indication: OSTEOARTHRITIS
     Route: 065
  11. CO-CODAMOL [Suspect]
     Indication: RHEUMATOID ARTHRITIS
     Route: 065
  12. CO-CODAMOL [Suspect]
     Indication: HYPERMOBILITY SYNDROME
     Route: 065
  13. DICLOFENAC [Suspect]
     Indication: PAIN
     Dosage: UNK
     Route: 065
  14. DICLOFENAC [Suspect]
     Indication: MYALGIA
  15. DICLOFENAC [Suspect]
     Indication: OSTEOPOROSIS
  16. DICLOFENAC [Suspect]
     Indication: OSTEOARTHRITIS
  17. DICLOFENAC [Suspect]
     Indication: RHEUMATOID ARTHRITIS
  18. DICLOFENAC [Suspect]
     Indication: HYPERMOBILITY SYNDROME
  19. LEFLUNOMIDE [Suspect]
     Indication: PAIN
  20. LEFLUNOMIDE [Suspect]
     Indication: MYALGIA
  21. LEFLUNOMIDE [Suspect]
     Indication: OSTEOPOROSIS
  22. LEFLUNOMIDE [Suspect]
     Indication: OSTEOARTHRITIS
  23. LEFLUNOMIDE [Suspect]
     Indication: RHEUMATOID ARTHRITIS
  24. LEFLUNOMIDE [Suspect]
     Indication: HYPERMOBILITY SYNDROME
  25. NAPROXEN [Suspect]
     Indication: PAIN
  26. NAPROXEN [Suspect]
     Indication: MYALGIA
  27. NAPROXEN [Suspect]
     Indication: OSTEOPOROSIS
  28. NAPROXEN [Suspect]
     Indication: OSTEOARTHRITIS
  29. NAPROXEN [Suspect]
     Indication: RHEUMATOID ARTHRITIS
  30. NAPROXEN [Suspect]
     Indication: HYPERMOBILITY SYNDROME

REACTIONS (2)
  - Suicidal ideation [Unknown]
  - Drug ineffective [Unknown]
